FAERS Safety Report 20008722 (Version 2)
Quarter: 2021Q4

REPORT INFORMATION
  Report Type: Spontaneous
  Country: US (occurrence: US)
  Receive Date: 20211028
  Receipt Date: 20211203
  Transmission Date: 20220303
  Serious: Yes (Other)
  Sender: FDA-Public Use
  Company Number: US-BAUSCH-BL-2021-035458

PATIENT
  Age: 57 Year
  Sex: Male
  Weight: 93.070 kg

DRUGS (5)
  1. TIMOLOL MALEATE [Suspect]
     Active Substance: TIMOLOL MALEATE
     Indication: Glaucoma
     Dosage: ONE DROP IN EACH EYE, ONCE ?DAILY IN THE MORNING
     Route: 047
  2. TIMOLOL MALEATE [Suspect]
     Active Substance: TIMOLOL MALEATE
     Route: 047
  3. MINERALS\VITAMINS [Suspect]
     Active Substance: MINERALS\VITAMINS
     Indication: Macular degeneration
     Dosage: DRUG TAKEN BEYOND EXPIRY DATE
     Route: 048
     Dates: start: 2021
  4. MINERALS\VITAMINS [Suspect]
     Active Substance: MINERALS\VITAMINS
     Route: 048
  5. LATANOPROST [Suspect]
     Active Substance: LATANOPROST
     Indication: Glaucoma
     Dosage: ONE DROP IN EACH EYE, STARTED MORE THAN 14 YEARS AGO
     Route: 047

REACTIONS (6)
  - Macular degeneration [Not Recovered/Not Resolved]
  - Gastrointestinal carcinoma [Unknown]
  - Abdominal discomfort [Recovered/Resolved]
  - Helicobacter infection [Unknown]
  - Expired product administered [Unknown]
  - Product leakage [Unknown]

NARRATIVE: CASE EVENT DATE: 20070101
